FAERS Safety Report 6660518-8 (Version None)
Quarter: 2010Q1

REPORT INFORMATION
  Report Type: 
  Country: None (occurrence: None)
  Receive Date: 20100331
  Receipt Date: 20100323
  Transmission Date: 20100710
  Serious: Yes (Other)
  Sender: FDA-Public Use
  Company Number: PHHY2010DK17887

PATIENT
  Age: 8 Year
  Sex: Female

DRUGS (4)
  1. RITALIN TAB [Suspect]
     Indication: ATTENTION DEFICIT/HYPERACTIVITY DISORDER
     Dosage: 20 MG
     Route: 048
     Dates: start: 20081101
  2. CONCERTA [Suspect]
     Indication: ATTENTION DEFICIT/HYPERACTIVITY DISORDER
     Dosage: 36 MG
     Route: 048
     Dates: start: 20090601
  3. RITALIN [Suspect]
     Indication: ATTENTION DEFICIT/HYPERACTIVITY DISORDER
     Dosage: 10 MG
     Route: 048
     Dates: start: 20081001, end: 20081101
  4. STRATTERA [Concomitant]

REACTIONS (3)
  - DECREASED IMMUNE RESPONSIVENESS [None]
  - MALAISE [None]
  - SKIN PAPILLOMA [None]
